FAERS Safety Report 11467675 (Version 2)
Quarter: 2017Q2

REPORT INFORMATION
  Report Type: Spontaneous
  Country: CN (occurrence: CN)
  Receive Date: 20150908
  Receipt Date: 20170425
  Transmission Date: 20170829
  Serious: Yes (Other)
  Sender: FDA-Public Use
  Company Number: PHHY2015CN106872

PATIENT
  Age: 50 Year
  Sex: Female
  Weight: 59.5 kg

DRUGS (2)
  1. METFORMIN [Concomitant]
     Active Substance: METFORMIN HYDROCHLORIDE
     Indication: DIABETES MELLITUS
     Route: 065
  2. ZOLEDRONATE [Suspect]
     Active Substance: ZOLEDRONIC ACID
     Indication: OSTEOPOROSIS
     Dosage: 5 MG, UNK
     Route: 041
     Dates: start: 20120412

REACTIONS (5)
  - Pyrexia [Unknown]
  - Arthralgia [Unknown]
  - Hepatotoxicity [Recovered/Resolved]
  - Myalgia [Unknown]
  - Infusion site reaction [Recovered/Resolved]
